FAERS Safety Report 5982557-2 (Version None)
Quarter: 2008Q4

REPORT INFORMATION
  Report Type: 
  Country: None (occurrence: None)
  Receive Date: 20081208
  Receipt Date: 20081127
  Transmission Date: 20090506
  Serious: Yes (Hospitalization, Other)
  Sender: FDA-Public Use
  Company Number: PHHY2008BR30126

PATIENT
  Age: 71 Year
  Sex: Female

DRUGS (5)
  1. FORASEQ [Suspect]
     Indication: LUNG DISORDER
  2. BAMIFIX [Concomitant]
     Indication: LUNG DISORDER
     Dosage: 300 MG, TWICE DAILY FOR 1YEAR
     Route: 048
  3. CAPTOPRIL [Concomitant]
     Indication: HYPERTENSION
     Dosage: 25 MG, THRICE DAILY
     Route: 048
  4. HYDROCHLOROTHIAZIDE [Concomitant]
     Indication: HYPERTENSION
     Dosage: 25 MG, ONCE DAILY
     Route: 048
  5. CORTICOSTEROIDS [Concomitant]

REACTIONS (9)
  - ALOPECIA [None]
  - BRONCHITIS [None]
  - HYPERSENSITIVITY [None]
  - OEDEMA PERIPHERAL [None]
  - PIGMENTATION DISORDER [None]
  - SWELLING [None]
  - SWELLING FACE [None]
  - WEIGHT DECREASED [None]
  - WOUND [None]
